FAERS Safety Report 4852452-0 (Version None)
Quarter: 2005Q4

REPORT INFORMATION
  Report Type: 
  Country: None (occurrence: None)
  Receive Date: 20051130
  Receipt Date: 20050727
  Transmission Date: 20060501
  Serious: No
  Sender: FDA-Public Use
  Company Number: WAES 0505USA02463

PATIENT
  Age: 70 Year
  Sex: Female
  Weight: 78.9259 kg

DRUGS (6)
  1. ZETIA [Suspect]
     Indication: BLOOD CHOLESTEROL INCREASED
     Dosage: 10 MG/DAILY/PO
     Route: 048
     Dates: start: 20030522, end: 20050512
  2. ZETIA [Suspect]
     Indication: HYPERLIPIDAEMIA
     Dosage: 10 MG/DAILY/PO
     Route: 048
     Dates: start: 20030522, end: 20050512
  3. AMARYL [Concomitant]
  4. AVAPRO [Concomitant]
  5. GLUCOPHAGE [Concomitant]
  6. LIPITOR [Concomitant]

REACTIONS (1)
  - BLOOD CREATINE PHOSPHOKINASE INCREASED [None]
